FAERS Safety Report 5473620-3 (Version None)
Quarter: 2007Q4

REPORT INFORMATION
  Report Type: 
  Country: None (occurrence: None)
  Receive Date: 20071001
  Receipt Date: 20070919
  Transmission Date: 20080405
  Serious: Yes (Hospitalization)
  Sender: FDA-Public Use
  Company Number: PH-PFIZER INC-2007078549

PATIENT
  Age: 7 Year
  Sex: Female

DRUGS (5)
  1. CLINDAMYCIN PHOSPHATE SOLUTION, STERILE [Suspect]
     Indication: PHARYNGOTONSILLITIS
     Route: 042
  2. AMPICILLIN AND SULBACTAM [Suspect]
     Indication: PHARYNGOTONSILLITIS
  3. ROXITHROMYCIN [Concomitant]
  4. CETIRIZINE HCL [Concomitant]
  5. PARACETAMOL [Concomitant]

REACTIONS (4)
  - DYSPHAGIA [None]
  - HEADACHE [None]
  - ODYNOPHAGIA [None]
  - RASH GENERALISED [None]
